FAERS Safety Report 9676952 (Version 1)
Quarter: 2013Q4

REPORT INFORMATION
  Report Type: Spontaneous
  Country: PH (occurrence: PH)
  Receive Date: 20131108
  Receipt Date: 20131108
  Transmission Date: 20140711
  Serious: Yes (Death)
  Sender: FDA-Public Use
  Company Number: PH-009507513-1311PHL002350

PATIENT
  Age: 62 Year
  Sex: Male

DRUGS (1)
  1. JANUMET [Suspect]
     Route: 048

REACTIONS (1)
  - Diabetic complication [Fatal]
